FAERS Safety Report 9349535 (Version 1)
Quarter: 2013Q2

REPORT INFORMATION
  Report Type: Spontaneous
  Country: US (occurrence: US)
  Receive Date: 20130614
  Receipt Date: 20130614
  Transmission Date: 20140414
  Serious: Yes (Other)
  Sender: FDA-Public Use
  Company Number: US-GLAXOSMITHKLINE-A1027175A

PATIENT
  Age: 52 Year
  Sex: Female

DRUGS (2)
  1. VENTOLIN HFA [Suspect]
     Route: 055
     Dates: start: 20110830
  2. SPIRIVA [Concomitant]
     Indication: CHRONIC OBSTRUCTIVE PULMONARY DISEASE

REACTIONS (2)
  - Pharyngeal operation [Unknown]
  - Treatment noncompliance [Unknown]
